FAERS Safety Report 12766735 (Version 1)
Quarter: 2016Q3

REPORT INFORMATION
  Report Type: Spontaneous
  Country: US (occurrence: US)
  Receive Date: 20160921
  Receipt Date: 20160921
  Transmission Date: 20161109
  Serious: No
  Sender: FDA-Public Use
  Company Number: US-ASTRAZENECA-2016SE81085

PATIENT
  Sex: Female

DRUGS (8)
  1. MS CONTIN [Concomitant]
     Active Substance: MORPHINE SULFATE
     Route: 048
  2. OVAN [Concomitant]
     Dosage: PATIENT ONLY TAKES 20 MG
     Route: 048
  3. LANTUS SOLSTAR [Concomitant]
     Dosage: 14 UNITS SUBCUTANEOUS EVERY BEOTINE
     Route: 058
  4. IBRANCE [Suspect]
     Active Substance: PALBOCICLIB
     Dosage: 125 MG ORALLY ONCE DAILY
     Route: 065
  5. NORCO [Concomitant]
     Active Substance: ACETAMINOPHEN\HYDROCODONE BITARTRATE
     Dosage: 1 TABLET ORALLY EVERY 4-6 HOURS
     Route: 048
  6. NITROSTAT [Suspect]
     Active Substance: NITROGLYCERIN
     Dosage: 0.4 MG SUBLINGUALLY
     Route: 060
  7. LIPITOR [Suspect]
     Active Substance: ATORVASTATIN CALCIUM
     Route: 065
  8. CRESTOR [Suspect]
     Active Substance: ROSUVASTATIN CALCIUM
     Route: 048

REACTIONS (2)
  - Dermatitis contact [Unknown]
  - Gait disturbance [Unknown]
